FAERS Safety Report 5081817-X (Version None)
Quarter: 2006Q3

REPORT INFORMATION
  Report Type: 
  Country: None (occurrence: None)
  Receive Date: 20060816
  Receipt Date: 20060811
  Transmission Date: 20061208
  Serious: Yes (Other)
  Sender: FDA-Public Use
  Company Number: GB-GLAXOSMITHKLINE-B0434171A

PATIENT
  Age: 61 Year
  Sex: Male
  Weight: 70 kg

DRUGS (2)
  1. CO AMOXICLAV [Suspect]
     Route: 048
     Dates: start: 20060601, end: 20060611
  2. FLUCLOXACILLIN [Concomitant]
     Dosage: 250MG FOUR TIMES PER DAY
     Route: 048
     Dates: start: 20060525, end: 20060601

REACTIONS (1)
  - JAUNDICE [None]
